FAERS Safety Report 13797225 (Version 3)
Quarter: 2017Q4

REPORT INFORMATION
  Report Type: Report from Study
  Country: AU (occurrence: AU)
  Receive Date: 20170727
  Receipt Date: 20171106
  Transmission Date: 20180320
  Serious: Yes (Other)
  Sender: FDA-Public Use
  Company Number: AU-BIOGEN-2017BI00435673

PATIENT
  Age: 41 Year
  Sex: Male
  Weight: 72 kg

DRUGS (7)
  1. VITAMIN C [Concomitant]
     Active Substance: ASCORBIC ACID
     Indication: ROUTINE HEALTH MAINTENANCE
     Route: 048
     Dates: start: 20140318
  2. MSM [Concomitant]
     Active Substance: DIMETHYL SULFONE
     Indication: ROUTINE HEALTH MAINTENANCE
     Route: 048
     Dates: start: 20140318
  3. MSM [Concomitant]
     Active Substance: DIMETHYL SULFONE
     Indication: MUSCULOSKELETAL PAIN
  4. VITAMIN D [Concomitant]
     Active Substance: CHOLECALCIFEROL
     Indication: ROUTINE HEALTH MAINTENANCE
     Route: 048
     Dates: start: 20130919
  5. FISH OIL (OMEGA 3) [Concomitant]
     Indication: ROUTINE HEALTH MAINTENANCE
     Route: 065
  6. GILENYA [Concomitant]
     Active Substance: FINGOLIMOD HYDROCHLORIDE
     Indication: MULTIPLE SCLEROSIS
     Route: 048
     Dates: start: 20120314, end: 20170401
  7. TYSABRI [Suspect]
     Active Substance: NATALIZUMAB
     Indication: MULTIPLE SCLEROSIS
     Route: 042
     Dates: start: 20091022, end: 20111118

REACTIONS (1)
  - Basal cell carcinoma [Recovered/Resolved]

NARRATIVE: CASE EVENT DATE: 20161121
